FAERS Safety Report 4385137-8 (Version None)
Quarter: 2004Q2

REPORT INFORMATION
  Report Type: 
  Country: None (occurrence: None)
  Receive Date: 20040607
  Receipt Date: 20030730
  Transmission Date: 20050107
  Serious: Yes (Other)
  Sender: FDA-Public Use
  Company Number: 343706

PATIENT

DRUGS (2)
  1. ISOTRETINOIN [Suspect]
     Dosage: ORAL
     Route: 048
     Dates: start: 20030325, end: 20030505
  2. ORAL CONTRACEPTIVE NOS (ORAL CONTRACEPTIVE) [Concomitant]

REACTIONS (1)
  - PREGNANCY [None]
